FAERS Safety Report 8051468-3 (Version None)
Quarter: 2012Q1

REPORT INFORMATION
  Report Type: 
  Country: None (occurrence: None)
  Receive Date: 20120117
  Receipt Date: 20120112
  Transmission Date: 20120608
  Serious: Yes (Death, Hospitalization, Disabling)
  Sender: FDA-Public Use
  Company Number: PE-ASTRAZENECA-2011SE76301

PATIENT
  Age: 75 Year
  Sex: Male

DRUGS (2)
  1. SEROQUEL [Suspect]
     Indication: DEMENTIA ALZHEIMER'S TYPE
     Route: 048
     Dates: start: 20070215
  2. EUTEBROL [Concomitant]

REACTIONS (4)
  - PNEUMONIA [None]
  - ACTIVITIES OF DAILY LIVING IMPAIRED [None]
  - RESPIRATORY DISTRESS [None]
  - APHAGIA [None]
